FAERS Safety Report 4286099-4 (Version None)
Quarter: 2004Q1

REPORT INFORMATION
  Report Type: 
  Country: None (occurrence: None)
  Receive Date: 20040203
  Receipt Date: 20040126
  Transmission Date: 20041129
  Serious: Yes (Other)
  Sender: FDA-Public Use
  Company Number: GBWYE544529JAN04

PATIENT
  Age: 49 Year
  Sex: Female

DRUGS (2)
  1. EFFEXOR [Suspect]
     Indication: DEPRESSION
     Dosage: 1-2 ON
     Dates: start: 20020827, end: 20030305
  2. CLARITHROMYCIN (CFLARITHROMYCIN) [Concomitant]

REACTIONS (1)
  - RETINAL VEIN THROMBOSIS [None]
